FAERS Safety Report 15461563 (Version 2)
Quarter: 2018Q4

REPORT INFORMATION
  Report Type: Spontaneous
  Country: US (occurrence: US)
  Receive Date: 20181003
  Receipt Date: 20181009
  Transmission Date: 20190204
  Serious: Yes (Other)
  Sender: FDA-Public Use
  Company Number: US-GE HEALTHCARE LIFE SCIENCES-2018CSU003941

PATIENT
  Age: 16 Year
  Sex: Female

DRUGS (1)
  1. OMNIPAQUE [Suspect]
     Active Substance: IOHEXOL
     Indication: MASS
     Dosage: 100 ML, SINGLE
     Route: 042
     Dates: start: 20180928, end: 20180928

REACTIONS (5)
  - Paraesthesia oral [Unknown]
  - Rhinorrhoea [Unknown]
  - Cough [Unknown]
  - Swelling face [Unknown]
  - Pruritus [Unknown]

NARRATIVE: CASE EVENT DATE: 20180928
